FAERS Safety Report 14319253 (Version 3)
Quarter: 2018Q1

REPORT INFORMATION
  Report Type: Spontaneous
  Country: JP (occurrence: JP)
  Receive Date: 20171222
  Receipt Date: 20180222
  Transmission Date: 20180509
  Serious: Yes (Other)
  Sender: FDA-Public Use
  Company Number: PHJP2017JP036420

PATIENT
  Age: 70 Year
  Sex: Female

DRUGS (1)
  1. PAZOPANIB [Suspect]
     Active Substance: PAZOPANIB
     Indication: UTERINE LEIOMYOSARCOMA
     Dosage: UNK
     Route: 048

REACTIONS (3)
  - Renal impairment [Recovered/Resolved]
  - Hypertensive encephalopathy [Recovered/Resolved]
  - Hypertension [Recovered/Resolved]
